FAERS Safety Report 17970048 (Version 1)
Quarter: 2020Q3

REPORT INFORMATION
  Report Type: Spontaneous
  Country: GB (occurrence: GB)
  Receive Date: 20200701
  Receipt Date: 20200701
  Transmission Date: 20201103
  Serious: Yes (Other)
  Sender: FDA-Public Use
  Company Number: GB-DEXPHARM-20200550

PATIENT
  Age: 2 Month
  Sex: Male

DRUGS (1)
  1. OMEPRAZOLE NON DEXCEL PRODUCT [Suspect]
     Active Substance: OMEPRAZOLE
     Indication: GASTROOESOPHAGEAL REFLUX DISEASE
     Dosage: IN MORNING. 4MG/ML
     Route: 048
     Dates: start: 20200514, end: 20200602

REACTIONS (1)
  - Choking [Recovered/Resolved]

NARRATIVE: CASE EVENT DATE: 20200514
